FAERS Safety Report 5747824-6 (Version None)
Quarter: 2008Q2

REPORT INFORMATION
  Report Type: 
  Country: None (occurrence: None)
  Receive Date: 20080523
  Receipt Date: 20080516
  Transmission Date: 20081010
  Serious: Yes (Other)
  Sender: FDA-Public Use
  Company Number: B0521316A

PATIENT
  Sex: Female

DRUGS (2)
  1. DARAPRIM [Suspect]
     Dosage: 50MG PER DAY
     Route: 065
     Dates: start: 20071129, end: 20071221
  2. SULFADIAZINE [Concomitant]
     Indication: TOXOPLASMOSIS
     Dosage: 4G PER DAY
     Dates: start: 20071129, end: 20071221

REACTIONS (1)
  - NEUTROPENIA [None]
